FAERS Safety Report 13636594 (Version 1)
Quarter: 2017Q2

REPORT INFORMATION
  Report Type: Spontaneous
  Country: US (occurrence: KR)
  Receive Date: 20170531
  Receipt Date: 20170531
  Transmission Date: 20170830
  Serious: No
  Sender: FDA-Public Use
  Company Number: US-ASTELLAS-1835485

PATIENT
  Sex: Male
  Weight: 68.1 kg

DRUGS (2)
  1. WARFARIN [Concomitant]
     Active Substance: WARFARIN
     Indication: ANTICOAGULANT THERAPY
  2. TARCEVA [Suspect]
     Active Substance: ERLOTINIB HYDROCHLORIDE
     Indication: LUNG NEOPLASM MALIGNANT
     Route: 048
     Dates: start: 201608

REACTIONS (13)
  - Stomatitis [Not Recovered/Not Resolved]
  - Diarrhoea [Not Recovered/Not Resolved]
  - Dysphagia [Not Recovered/Not Resolved]
  - Rash [Unknown]
  - Temperature intolerance [Unknown]
  - Weight decreased [Unknown]
  - Dermatitis acneiform [Unknown]
  - Hyperaesthesia [Unknown]
  - Acne [Unknown]
  - Abdominal discomfort [Unknown]
  - Skin irritation [Unknown]
  - Skin ulcer [Unknown]
  - Hypogeusia [Unknown]
